FAERS Safety Report 21916422 (Version 1)
Quarter: 2023Q1

REPORT INFORMATION
  Report Type: Spontaneous
  Country: CA (occurrence: CA)
  Receive Date: 20230126
  Receipt Date: 20230126
  Transmission Date: 20230417
  Serious: Yes (Other)
  Sender: FDA-Public Use
  Company Number: CA-PFIZER INC-PV202300013375

PATIENT
  Age: 50 Year
  Sex: Female

DRUGS (2)
  1. PAXLOVID [Suspect]
     Active Substance: NIRMATRELVIR\RITONAVIR
  2. OCREVUS [Concomitant]
     Active Substance: OCRELIZUMAB

REACTIONS (1)
  - Abdominal pain upper [Recovering/Resolving]
